FAERS Safety Report 18823975 (Version 1)
Quarter: 2021Q1

REPORT INFORMATION
  Report Type: Spontaneous
  Country: US (occurrence: US)
  Receive Date: 20210201
  Receipt Date: 20210201
  Transmission Date: 20210419
  Serious: Yes (Death, Other)
  Sender: FDA-Public Use
  Company Number: US-PFIZER INC-2016573229

PATIENT
  Age: 65 Year
  Sex: Female

DRUGS (19)
  1. REVATIO [Suspect]
     Active Substance: SILDENAFIL CITRATE
     Dosage: 20 MG, 3X/DAY
     Route: 048
  2. PANTOPRAZOLE [Concomitant]
     Active Substance: PANTOPRAZOLE
     Dosage: 40 MG, 2X/DAY
     Route: 048
  3. ALLOPURINOL. [Concomitant]
     Active Substance: ALLOPURINOL
     Dosage: 300 MG, DAILY
     Route: 048
  4. SODIUM CHLORIDE. [Concomitant]
     Active Substance: SODIUM CHLORIDE
     Dosage: UNK (USE 1 SPRAY INTO EACH NOSTRIL 5 TIMES A DAY)
     Route: 045
  5. LACTOSE [Concomitant]
     Active Substance: LACTOSE
     Dosage: UNK, 2X/DAY (FOOD SUPPLEMENT, LACTOSE?REDUCED)
     Route: 048
  6. FUROSEMIDE. [Concomitant]
     Active Substance: FUROSEMIDE
     Indication: OEDEMA
     Dosage: 0.5 DF, DAILY
     Route: 048
  7. ALBUTEROL HFA [Concomitant]
     Active Substance: ALBUTEROL SULFATE
     Dosage: UNK (90 MCG/ACTUATION INHALER: INHALE INTO THE LUNGS)
  8. REVATIO [Suspect]
     Active Substance: SILDENAFIL CITRATE
     Indication: PULMONARY HYPERTENSION
     Dosage: 40 MG, 3X/DAY (TAKE 2 TABLETS(40 MG TOTAL) BY MOUTH 3 TIMES A DAY)
     Route: 048
  9. ONDANSETRON [Concomitant]
     Active Substance: ONDANSETRON
     Indication: NAUSEA
     Dosage: 4 MG, AS NEEDED (TAKE 1 TABLET (4MG TOTAL) BY MOUTH EVERY 8 HOURS AS NEEDED)
     Route: 048
  10. PSYLLIUM SEEDS [Concomitant]
     Dosage: UNK (POWD: USE AS DIRECTED)
  11. TRAMADOL. [Concomitant]
     Active Substance: TRAMADOL
     Indication: PAIN
     Dosage: 50 MG, AS NEEDED(TAKE 1 TABLET (50 MG TOTAL) BY MOUTH EVERY 6 HOURS AS NEEDED)
     Route: 048
  12. MAGNESIUM OXIDE. [Concomitant]
     Active Substance: MAGNESIUM OXIDE
     Dosage: 400 MG, 2X/DAY
     Route: 048
  13. SPIRONOLACTONE. [Concomitant]
     Active Substance: SPIRONOLACTONE
     Indication: CARDIAC FAILURE CHRONIC
     Dosage: 50 MG, DAILY
     Route: 048
  14. CITALOPRAM [Concomitant]
     Active Substance: CITALOPRAM HYDROBROMIDE
     Dosage: 20 MG, DAILY
     Route: 048
  15. LOPERAMIDE [Concomitant]
     Active Substance: LOPERAMIDE
     Indication: DIARRHOEA
     Dosage: 2 MG, AS NEEDED (TAKE 1 CAPSULE (2 MG TOTAL) BY MOUTH 4 TIMES A DAY AS NEEDED )
     Route: 048
  16. CYANOCOBALAMIN. [Concomitant]
     Active Substance: CYANOCOBALAMIN
     Dosage: 500 UG, DAILY
     Route: 048
  17. FERROUS SULFATE. [Concomitant]
     Active Substance: FERROUS SULFATE
     Dosage: 325 MG, DAILY (TAKE 1 TABLET (325 MG TOTAL) BY MOUTH DAILY WITH BREAKFAST)
     Route: 048
  18. AZELASTINE. [Concomitant]
     Active Substance: AZELASTINE HYDROCHLORIDE
     Dosage: 137 UG, 2X/DAY (USE 1 SPRAY INTO EACH NOSTRIL 2 TIMES A DAY)
     Route: 045
  19. EPOPROSTENOL. [Concomitant]
     Active Substance: EPOPROSTENOL
     Dosage: 3 MG
     Route: 042

REACTIONS (2)
  - Off label use [Unknown]
  - Death [Fatal]
